FAERS Safety Report 21650576 (Version 4)
Quarter: 2023Q2

REPORT INFORMATION
  Report Type: Spontaneous
  Country: US (occurrence: US)
  Receive Date: 20221128
  Receipt Date: 20230511
  Transmission Date: 20230722
  Serious: No
  Sender: FDA-Public Use
  Company Number: US-PFIZER INC-PV202200110327

PATIENT
  Age: 77 Year
  Sex: Female

DRUGS (1)
  1. IBRANCE [Suspect]
     Active Substance: PALBOCICLIB
     Dosage: 125 MG
     Dates: start: 20220517

REACTIONS (6)
  - Asthenia [Unknown]
  - Off label use [Unknown]
  - Neoplasm progression [Unknown]
  - Vein disorder [Unknown]
  - Hypoaesthesia [Unknown]
  - Hypoaesthesia [Unknown]
